FAERS Safety Report 13609155 (Version 3)
Quarter: 2017Q2

REPORT INFORMATION
  Report Type: Spontaneous
  Country: JP (occurrence: JP)
  Receive Date: 20170602
  Receipt Date: 20170620
  Transmission Date: 20170830
  Serious: Yes (Death, Hospitalization)
  Sender: FDA-Public Use
  Company Number: JP-PFIZER INC-2017241713

PATIENT
  Age: 55 Year
  Sex: Female
  Weight: 46 kg

DRUGS (19)
  1. CAMPTO [Suspect]
     Active Substance: IRINOTECAN
     Indication: NEUROENDOCRINE CARCINOMA
     Dosage: 217.4 MG, CYCLIC (1X/DAY) (217.4 MG/BODY)
     Route: 041
     Dates: start: 20160314, end: 20160314
  2. CAMPTO [Suspect]
     Active Substance: IRINOTECAN
     Dosage: 217.4 MG, CYCLIC (1X/DAY)
     Route: 041
     Dates: start: 20160525, end: 20160525
  3. CISPLATIN. [Suspect]
     Active Substance: CISPLATIN
     Dosage: 40 MG/M2, 1X/DAY
     Route: 041
     Dates: start: 20160720, end: 20160720
  4. ETOPOSIDE. [Suspect]
     Active Substance: ETOPOSIDE
     Indication: NEUROENDOCRINE CARCINOMA
     Dosage: UNK
     Dates: start: 20160220, end: 20160222
  5. ALLOPURINOL. [Concomitant]
     Active Substance: ALLOPURINOL
     Dosage: UNK
     Route: 048
     Dates: start: 2016
  6. CAMPTO [Suspect]
     Active Substance: IRINOTECAN
     Dosage: 217.4 MG, CYCLIC (1X/DAY)
     Route: 041
     Dates: start: 20160608, end: 20160608
  7. CAMPTO [Suspect]
     Active Substance: IRINOTECAN
     Dosage: 217.4 MG, CYCLIC (1X/DAY)
     Route: 041
     Dates: start: 20160411, end: 20160411
  8. CISPLATIN. [Suspect]
     Active Substance: CISPLATIN
     Indication: NEUROENDOCRINE CARCINOMA
     Dosage: UNK
     Dates: start: 20160220, end: 20160220
  9. CAMPTO [Suspect]
     Active Substance: IRINOTECAN
     Dosage: 217.4 MG, CYCLIC (1X/DAY)
     Route: 041
     Dates: start: 20160427, end: 20160427
  10. CAMPTO [Suspect]
     Active Substance: IRINOTECAN
     Dosage: 217.4 MG, CYCLIC (1X/DAY)
     Route: 041
     Dates: start: 20160622, end: 20160622
  11. CAMPTO [Suspect]
     Active Substance: IRINOTECAN
     Dosage: 217.4 MG, CYCLIC (1X/DAY)
     Route: 041
     Dates: start: 20160706, end: 20160706
  12. RED BLOOD CELLS-LEUKOCYTES REDUCED [Concomitant]
     Dosage: UNK
     Dates: start: 20160719
  13. CAMPTO [Suspect]
     Active Substance: IRINOTECAN
     Dosage: 217.4 MG, CYCLIC (1X/DAY)
     Route: 041
     Dates: start: 20160328, end: 20160328
  14. FEBURIC [Concomitant]
     Active Substance: FEBUXOSTAT
     Dosage: UNK
     Dates: start: 20160219
  15. CAMPTO [Suspect]
     Active Substance: IRINOTECAN
     Dosage: 217.4 MG, CYCLIC (1X/DAY)
     Route: 041
     Dates: start: 20160511, end: 20160511
  16. MAXIPIME [Concomitant]
     Active Substance: CEFEPIME HYDROCHLORIDE
     Dosage: UNK
     Dates: start: 20160727
  17. RASURITEK [Concomitant]
     Active Substance: RASBURICASE
     Dosage: UNK
     Dates: start: 20160225
  18. ETOPOSIDE. [Suspect]
     Active Substance: ETOPOSIDE
     Dosage: 80 MG/M2, 1X/DAY
     Route: 041
     Dates: start: 20160720, end: 20160722
  19. G LASTA [Concomitant]
     Active Substance: PEGFILGRASTIM
     Dosage: UNK
     Dates: start: 20160723, end: 20160723

REACTIONS (2)
  - Haemoglobin decreased [Recovering/Resolving]
  - Tumour lysis syndrome [Recovered/Resolved]

NARRATIVE: CASE EVENT DATE: 20160222
